FAERS Safety Report 8238251-0 (Version None)
Quarter: 2012Q1

REPORT INFORMATION
  Report Type: 
  Country: None (occurrence: None)
  Receive Date: 20120327
  Receipt Date: 20120313
  Transmission Date: 20120608
  Serious: Yes (Hospitalization)
  Sender: FDA-Public Use
  Company Number: US-MYLANLABS-2012S1005812

PATIENT
  Age: 65 Year
  Sex: Female

DRUGS (3)
  1. CITALOPRAM HYDROBROMIDE [Suspect]
     Indication: DEPRESSION
     Dosage: 20MG DAILY
     Route: 065
  2. SIMVASTATIN [Concomitant]
     Indication: HYPERLIPIDAEMIA
     Dosage: 40MG DAILY
     Route: 065
  3. HYDROXYCUT [Interacting]
     Indication: WEIGHT DECREASED
     Route: 065

REACTIONS (2)
  - CEREBRAL VASOCONSTRICTION [None]
  - DRUG INTERACTION [None]
